FAERS Safety Report 6686767-0 (Version None)
Quarter: 2010Q2

REPORT INFORMATION
  Report Type: 
  Country: None (occurrence: None)
  Receive Date: 20100419
  Receipt Date: 20100416
  Transmission Date: 20101027
  Serious: Yes (Other)
  Sender: FDA-Public Use
  Company Number: IE-ROXANE LABORATORIES, INC.-2010-RO-00418RO

PATIENT

DRUGS (1)
  1. HYDROMORPHONE HCL [Suspect]
     Route: 058

REACTIONS (2)
  - DRUG ADMINISTRATION ERROR [None]
  - SEDATION [None]
